FAERS Safety Report 18984382 (Version 11)
Quarter: 2024Q1

REPORT INFORMATION
  Report Type: Spontaneous
  Country: US (occurrence: US)
  Receive Date: 20210308
  Receipt Date: 20240109
  Transmission Date: 20240410
  Serious: No
  Sender: FDA-Public Use
  Company Number: US-PFIZER INC-2021229606

PATIENT
  Age: 61 Year
  Sex: Male
  Weight: 72.562 kg

DRUGS (3)
  1. EUCRISA [Suspect]
     Active Substance: CRISABOROLE
     Indication: Eczema
     Dosage: 1 DF, 2X/DAY (APPLY THIN FILM/LAYER TO AFFECTED AREAS TWICE A DAY AS NEEDED)
     Route: 061
  2. EUCRISA [Suspect]
     Active Substance: CRISABOROLE
     Indication: Dermatitis atopic
     Dosage: UNK, 2X/DAY (APPLY A THIN FILM TO AFFECTED AREA AS NEEDED TWICE DAILY 60GRAM)
  3. EUCRISA [Suspect]
     Active Substance: CRISABOROLE
     Indication: Ichthyosis
     Dosage: UNK, AS NEEDED ( AREA AS NEEDED TWICE DAILY), 60GRAM

REACTIONS (2)
  - Memory impairment [Unknown]
  - Cognitive disorder [Unknown]
